FAERS Safety Report 4714227-2 (Version None)
Quarter: 2005Q3

REPORT INFORMATION
  Report Type: 
  Country: None (occurrence: None)
  Receive Date: 20050713
  Receipt Date: 20050713
  Transmission Date: 20060218
  Serious: Yes (Life-Threatening, Hospitalization)
  Sender: FDA-Public Use
  Company Number: None

PATIENT
  Age: 40 Year
  Sex: Male
  Weight: 78.0187 kg

DRUGS (1)
  1. ADVAIR DISKUS 100/50 [Suspect]
     Indication: ASTHMA
     Dosage: 2 PUFFS BID SUBDERMAL
     Route: 059
     Dates: start: 20000510, end: 20000706

REACTIONS (7)
  - CARDIOMYOPATHY [None]
  - EJECTION FRACTION DECREASED [None]
  - FATIGUE [None]
  - FEAR [None]
  - HEART RATE IRREGULAR [None]
  - SKIN DISCOLOURATION [None]
  - TACHYCARDIA [None]
